FAERS Safety Report 17113152 (Version 1)
Quarter: 2019Q4

REPORT INFORMATION
  Report Type: Report from Study
  Country: US (occurrence: US)
  Receive Date: 20191204
  Receipt Date: 20191204
  Transmission Date: 20200122
  Serious: Yes (Hospitalization, Other)
  Sender: FDA-Public Use
  Company Number: US-MALLINCKRODT-T201903746

PATIENT
  Sex: Male
  Weight: 59 kg

DRUGS (6)
  1. REPOSITORY CORTICOTROPIN INJECTION [Suspect]
     Active Substance: CORTICOTROPIN
     Dosage: 60 UNITS, TWICE WEEKLY
     Route: 058
     Dates: start: 201906, end: 2019
  2. REPOSITORY CORTICOTROPIN INJECTION [Suspect]
     Active Substance: CORTICOTROPIN
     Indication: CHORIORETINAL DISORDER
     Dosage: 40 UNITS TWICE WEEKLY
     Route: 058
     Dates: start: 20190319, end: 201906
  3. REPOSITORY CORTICOTROPIN INJECTION [Suspect]
     Active Substance: CORTICOTROPIN
     Dosage: UNK, 3 TIMES WEEKLY (MONDAY, WEDNESDAY AND FRIDAY)
     Route: 058
     Dates: start: 2019
  4. REPOSITORY CORTICOTROPIN INJECTION [Suspect]
     Active Substance: CORTICOTROPIN
     Dosage: 1 ML TWICE PER WEEK
     Route: 058
     Dates: start: 201907, end: 2019
  5. REPOSITORY CORTICOTROPIN INJECTION [Suspect]
     Active Substance: CORTICOTROPIN
     Dosage: 0.75 ML TWICE WEEKLY
     Route: 058
     Dates: start: 2019, end: 2019
  6. REPOSITORY CORTICOTROPIN INJECTION [Suspect]
     Active Substance: CORTICOTROPIN
     Dosage: 0.75 ML TWICE WEEKLY
     Route: 058
     Dates: start: 2019, end: 2019

REACTIONS (16)
  - Fat tissue increased [Unknown]
  - Night sweats [Not Recovered/Not Resolved]
  - Euphoric mood [Unknown]
  - Adrenal insufficiency [Unknown]
  - Immunodeficiency [Unknown]
  - Contusion [Unknown]
  - Injection site bruising [Not Recovered/Not Resolved]
  - Pneumonia [Not Recovered/Not Resolved]
  - Cough [Not Recovered/Not Resolved]
  - Dyspnoea [Unknown]
  - Insomnia [Not Recovered/Not Resolved]
  - Pulmonary congestion [Unknown]
  - Thirst [Unknown]
  - Fatigue [Not Recovered/Not Resolved]
  - Disturbance in attention [Unknown]
  - Therapeutic response shortened [Unknown]

NARRATIVE: CASE EVENT DATE: 2019
